FAERS Safety Report 6875813-7 (Version None)
Quarter: 2010Q3

REPORT INFORMATION
  Report Type: 
  Country: None (occurrence: None)
  Receive Date: 20100727
  Receipt Date: 20100720
  Transmission Date: 20110219
  Serious: Yes (Hospitalization, Other)
  Sender: FDA-Public Use
  Company Number: US-ASTRAZENECA-2006UW07706

PATIENT
  Age: 40 Year
  Sex: Female
  Weight: 70.3 kg

DRUGS (35)
  1. SEROQUEL [Suspect]
     Indication: BIPOLAR DISORDER
     Dosage: 25 TO 300MG
     Route: 048
     Dates: start: 20041125, end: 20061201
  2. SEROQUEL [Suspect]
     Indication: DEPRESSION
     Dosage: 25 TO 300MG
     Route: 048
     Dates: start: 20041125, end: 20061201
  3. SEROQUEL [Suspect]
     Indication: ANXIETY
     Dosage: 25 TO 300MG
     Route: 048
     Dates: start: 20041125, end: 20061201
  4. SEROQUEL [Suspect]
     Dosage: 50 MG TO 400 MG
     Route: 048
     Dates: start: 20041128, end: 20060215
  5. SEROQUEL [Suspect]
     Dosage: 50 MG TO 400 MG
     Route: 048
     Dates: start: 20041128, end: 20060215
  6. SEROQUEL [Suspect]
     Dosage: 50 MG TO 400 MG
     Route: 048
     Dates: start: 20041128, end: 20060215
  7. ZYPREXA [Concomitant]
     Dosage: 5-20 MG
     Route: 065
     Dates: start: 20020101, end: 20040101
  8. NEURONTIN [Concomitant]
     Route: 065
  9. ALPRAZOLAM [Concomitant]
     Route: 065
  10. LEXAPRO [Concomitant]
     Route: 065
  11. PRILOSEC [Concomitant]
     Route: 065
  12. LISINOPRIL [Concomitant]
     Route: 065
  13. CARBAMAZEPINE [Concomitant]
     Route: 065
  14. SENNA [Concomitant]
     Route: 065
  15. OXYCODONE HCL AND ACETAMINOPHEN [Concomitant]
     Route: 065
  16. IBUPROFEN TABLETS [Concomitant]
     Route: 065
  17. NAPROXEN [Concomitant]
     Route: 065
  18. POLYETHYLENE GLYCOL 3350 AND ELECTOLYTES [Concomitant]
     Route: 065
  19. ROXICODONE [Concomitant]
     Route: 048
  20. RANITIDINE [Concomitant]
     Route: 048
  21. RABAXIN [Concomitant]
     Route: 048
  22. METOCLOPRAMIDE [Concomitant]
     Route: 048
  23. ASPIRIN [Concomitant]
     Route: 048
  24. LITHIUM [Concomitant]
     Route: 048
  25. COMPAZINE [Concomitant]
     Dosage: ONE SUPPOSSITORY AS NEEDED
     Route: 065
  26. BUSPAR [Concomitant]
     Route: 048
  27. PERCOCET [Concomitant]
     Dosage: 10/650 MG ONE TAB 6 HOURLY
     Route: 048
  28. LORCET-HD [Concomitant]
     Dosage: 10/650 MG EVERY 6 HOURLY
     Route: 048
  29. ABILIFY [Concomitant]
     Dosage: 15-30 MG
     Route: 048
     Dates: start: 20040101, end: 20070101
  30. KLONOPIN [Concomitant]
     Route: 048
  31. TEGRETOL [Concomitant]
     Route: 048
  32. XANAX [Concomitant]
     Route: 048
  33. HYOSCYAMINE [Concomitant]
     Route: 065
  34. FLEXERIL [Concomitant]
     Route: 065
  35. RISPERDAL [Concomitant]
     Dosage: 2 MG
     Dates: start: 20070101

REACTIONS (14)
  - ANGINA UNSTABLE [None]
  - ARRHYTHMIA [None]
  - BACK INJURY [None]
  - CARDIAC DISORDER [None]
  - CARDIOMYOPATHY [None]
  - CHEST PAIN [None]
  - CHOLELITHIASIS [None]
  - HYPERGLYCAEMIA [None]
  - MITRAL VALVE DISEASE [None]
  - NEUROPATHY PERIPHERAL [None]
  - PANCREATITIS [None]
  - PANCREATITIS CHRONIC [None]
  - TRANSAMINASES INCREASED [None]
  - TYPE 2 DIABETES MELLITUS [None]
